FAERS Safety Report 9372333 (Version 3)
Quarter: 2013Q4

REPORT INFORMATION
  Report Type: Spontaneous
  Country: US (occurrence: US)
  Receive Date: 20130627
  Receipt Date: 20131104
  Transmission Date: 20140711
  Serious: Yes (Death, Hospitalization, Other)
  Sender: FDA-Public Use
  Company Number: US-VERTEX PHARMACEUTICALS INC-2013-007461

PATIENT
  Sex: Female
  Weight: 80 kg

DRUGS (3)
  1. INCIVEK [Suspect]
     Indication: HEPATITIS C
     Dosage: 750 MG, TID
     Route: 048
     Dates: start: 20130415, end: 20130623
  2. INTERFERON [Suspect]
     Indication: HEPATITIS C
     Dosage: UNK
     Dates: start: 20130415, end: 20130623
  3. RIBAVIRIN [Suspect]
     Indication: HEPATITIS C
     Dosage: UNK
     Dates: start: 20130415, end: 20130623

REACTIONS (14)
  - Septic shock [Fatal]
  - Cardio-respiratory arrest [Fatal]
  - Renal failure acute [Fatal]
  - Loss of consciousness [Fatal]
  - Lactic acidosis [Fatal]
  - Staphylococcal bacteraemia [Fatal]
  - Hypotension [Unknown]
  - Blood culture positive [Unknown]
  - Dyspnoea [Not Recovered/Not Resolved]
  - Dermatosis [Not Recovered/Not Resolved]
  - Malaise [Unknown]
  - Decreased appetite [Unknown]
  - Herpes zoster [Recovered/Resolved]
  - Rash generalised [Unknown]
